FAERS Safety Report 24655626 (Version 1)
Quarter: 2024Q4

REPORT INFORMATION
  Report Type: Spontaneous
  Country: US (occurrence: US)
  Receive Date: 20241123
  Receipt Date: 20241123
  Transmission Date: 20250115
  Serious: No
  Sender: Kenvue
  Company Number: US-KENVUE-20241101520

PATIENT
  Age: 66 Year
  Sex: Female

DRUGS (3)
  1. CETIRIZINE HYDROCHLORIDE [Suspect]
     Active Substance: CETIRIZINE HYDROCHLORIDE
     Indication: Angioedema
     Dosage: 20 MILLIGRAM, TWICE A DAY
     Route: 065
  2. PREDNISONE [Concomitant]
     Active Substance: PREDNISONE
     Indication: Angioedema
     Route: 065
  3. OMALIZUMAB [Concomitant]
     Active Substance: OMALIZUMAB
     Indication: Angioedema
     Route: 065

REACTIONS (2)
  - Prescribed overdose [Unknown]
  - Off label use [Unknown]
